FAERS Safety Report 8252423-0 (Version None)
Quarter: 2012Q2

REPORT INFORMATION
  Report Type: 
  Country: None (occurrence: None)
  Receive Date: 20120402
  Receipt Date: 20110630
  Transmission Date: 20120825
  Serious: No
  Sender: FDA-Public Use
  Company Number: US-ABBOTT-11P-163-0835358-00

PATIENT
  Sex: Male

DRUGS (5)
  1. ANDROGEL [Suspect]
     Indication: BLOOD TESTOSTERONE DECREASED
     Route: 062
  2. TESTIM [Suspect]
     Indication: BLOOD TESTOSTERONE DECREASED
     Dosage: STARTED APPROXIMATELY 5 WEEKS AGO
     Route: 062
     Dates: start: 20110501
  3. MULTIPLE UNKNOWN MEDICATIONS [Concomitant]
     Indication: PRODUCT USED FOR UNKNOWN INDICATION
  4. TESTIM [Suspect]
  5. NUVIGIL [Concomitant]
     Indication: CONTINUOUS POSITIVE AIRWAY PRESSURE
     Dates: start: 20110501

REACTIONS (4)
  - ASTHENIA [None]
  - LIBIDO DECREASED [None]
  - BLOOD LUTEINISING HORMONE ABNORMAL [None]
  - BLOOD TESTOSTERONE ABNORMAL [None]
